FAERS Safety Report 8845018 (Version 1)
Quarter: 2012Q4

REPORT INFORMATION
  Report Type: 
  Country: JP (occurrence: JP)
  Receive Date: 20121017
  Receipt Date: 20121017
  Transmission Date: 20130627
  Serious: Yes (Hospitalization)
  Sender: FDA-Public Use
  Company Number: JP-PFIZER INC-2012194996

PATIENT
  Age: 63 Year
  Sex: Male
  Weight: 55 kg

DRUGS (8)
  1. CARDENALIN [Suspect]
     Indication: HYPERTENSION
     Dosage: 4 mg, 2x/day
     Route: 048
     Dates: start: 20120613, end: 20120718
  2. CARDENALIN [Suspect]
     Dosage: 6 mg, 2x/day
     Route: 048
     Dates: start: 20120718, end: 20120804
  3. ALDOMET [Suspect]
     Indication: HYPERTENSION
     Dosage: 125 mg, 1x/day
     Route: 048
     Dates: start: 20120718, end: 20120727
  4. ALDOMET [Suspect]
     Dosage: 250 mg, 2x/day
     Route: 048
     Dates: start: 20120727, end: 20120804
  5. IRBETAN [Concomitant]
     Indication: HYPERTENSION
     Dosage: 200 mg, 1x/day
     Route: 048
     Dates: end: 20120622
  6. ADALAT [Concomitant]
     Indication: HYPERTENSION
     Dosage: 60 mg, 2x/day
     Route: 048
  7. OLMETEC [Concomitant]
     Indication: HYPERTENSION
     Dosage: 40 mg, 2x/day
     Route: 048
     Dates: start: 20120622
  8. RENIVACE [Concomitant]
     Indication: HYPERTENSION
     Dosage: 5 mg, 1x/day
     Route: 048
     Dates: start: 20120807

REACTIONS (1)
  - Sinus bradycardia [Recovered/Resolved]
